FAERS Safety Report 4561015-6 (Version None)
Quarter: 2005Q1

REPORT INFORMATION
  Report Type: 
  Country: None (occurrence: None)
  Receive Date: 20050126
  Receipt Date: 20040728
  Transmission Date: 20050727
  Serious: No
  Sender: FDA-Public Use
  Company Number: US-BRISTOL-MYERS SQUIBB COMPANY-12653671

PATIENT
  Age: 76 Year
  Sex: Female
  Weight: 57 kg

DRUGS (9)
  1. GLUCOPHAGE [Suspect]
     Indication: DIABETES MELLITUS
     Dosage: STARTED AT 500MG/DAY THEN INCREASED IN JUN-2004
     Route: 048
     Dates: start: 20040501
  2. NASACORT [Concomitant]
  3. LIPITOR [Concomitant]
  4. ATENOLOL [Concomitant]
  5. ASPIRIN [Concomitant]
  6. XANAX [Concomitant]
  7. ARTIFICIAL TEARS [Concomitant]
     Route: 047
  8. TRAVATAN [Concomitant]
  9. NEXIUM [Concomitant]

REACTIONS (1)
  - STOMACH DISCOMFORT [None]
